FAERS Safety Report 19754660 (Version 2)
Quarter: 2021Q4

REPORT INFORMATION
  Report Type: Report from Study
  Country: FR (occurrence: FR)
  Receive Date: 20210827
  Receipt Date: 20211208
  Transmission Date: 20220303
  Serious: Yes (Hospitalization)
  Sender: FDA-Public Use
  Company Number: FR-JNJFOC-20210304361

PATIENT
  Age: 44 Year
  Sex: Male

DRUGS (4)
  1. SPRAVATO [Suspect]
     Active Substance: ESKETAMINE
     Indication: Depression
     Dates: start: 20200615
  2. SPRAVATO [Suspect]
     Active Substance: ESKETAMINE
     Dates: start: 20201215, end: 20201215
  3. SPRAVATO [Suspect]
     Active Substance: ESKETAMINE
     Dates: start: 20201217, end: 20210107
  4. QUETIAPINE [Concomitant]
     Active Substance: QUETIAPINE
     Indication: Insomnia
     Route: 065

REACTIONS (3)
  - Drug ineffective [Recovered/Resolved]
  - Off label use [Unknown]
  - Product use issue [Unknown]

NARRATIVE: CASE EVENT DATE: 20201208
